FAERS Safety Report 5924383-6 (Version None)
Quarter: 2008Q4

REPORT INFORMATION
  Report Type: 
  Country: None (occurrence: None)
  Receive Date: 20081020
  Receipt Date: 20081016
  Transmission Date: 20090506
  Serious: Yes (Other)
  Sender: FDA-Public Use
  Company Number: US-ELI_LILLY_AND_COMPANY-US200810001887

PATIENT
  Sex: Female

DRUGS (1)
  1. BYETTA [Suspect]
     Dosage: 10 UG, 2/D
     Route: 058

REACTIONS (5)
  - ACCIDENTAL OVERDOSE [None]
  - FALL [None]
  - HYPOGLYCAEMIC UNCONSCIOUSNESS [None]
  - MALAISE [None]
  - SKIN LACERATION [None]
